FAERS Safety Report 14330162 (Version 2)
Quarter: 2018Q1

REPORT INFORMATION
  Report Type: Report from Study
  Country: US (occurrence: US)
  Receive Date: 20171227
  Receipt Date: 20180208
  Transmission Date: 20180509
  Serious: Yes (Hospitalization)
  Sender: FDA-Public Use
  Company Number: US-EISAI MEDICAL RESEARCH-EC-2017-034500

PATIENT
  Age: 78 Year
  Sex: Female
  Weight: 44.95 kg

DRUGS (13)
  1. PRAVASTATIN. [Concomitant]
     Active Substance: PRAVASTATIN
  2. DOXYCYCLINE. [Concomitant]
     Active Substance: DOXYCYCLINE
  3. LENVATINIB [Suspect]
     Active Substance: LENVATINIB
     Indication: LUNG ADENOCARCINOMA
     Route: 048
     Dates: start: 20171212
  4. GABAPENTIN. [Concomitant]
     Active Substance: GABAPENTIN
  5. ERIBULIN [Suspect]
     Active Substance: ERIBULIN
     Indication: LUNG ADENOCARCINOMA
     Dosage: UNKNOWN
     Route: 041
     Dates: start: 20171211
  6. LENVATINIB [Suspect]
     Active Substance: LENVATINIB
     Indication: ADRENAL MASS
  7. CYANOCOBALAMIN. [Concomitant]
     Active Substance: CYANOCOBALAMIN
  8. ZOFRAN [Concomitant]
     Active Substance: ONDANSETRON HYDROCHLORIDE
  9. ACETAMINOPHEN. [Concomitant]
     Active Substance: ACETAMINOPHEN
  10. ERIBULIN [Suspect]
     Active Substance: ERIBULIN
     Indication: ADRENAL MASS
  11. ALPRAZOLAM. [Concomitant]
     Active Substance: ALPRAZOLAM
  12. METOCLOPRAMIDE. [Concomitant]
     Active Substance: METOCLOPRAMIDE
  13. PHENERGAN [Concomitant]
     Active Substance: PROMETHAZINE HYDROCHLORIDE

REACTIONS (4)
  - Nausea [Recovering/Resolving]
  - Fatigue [Recovering/Resolving]
  - Vomiting [Recovering/Resolving]
  - Pneumonia [Recovering/Resolving]

NARRATIVE: CASE EVENT DATE: 20171220
